FAERS Safety Report 9414629 (Version 1)
Quarter: 2013Q3

REPORT INFORMATION
  Report Type: Report from Study
  Country: IL (occurrence: IL)
  Receive Date: 20130723
  Receipt Date: 20130723
  Transmission Date: 20140515
  Serious: Yes (Death, Other)
  Sender: FDA-Public Use
  Company Number: IL-CELGENEUS-082-C5013-13010756

PATIENT
  Age: 64 Year
  Sex: Male

DRUGS (2)
  1. CC-5013 [Suspect]
     Indication: MYELOFIBROSIS
     Route: 048
     Dates: start: 2008
  2. CC-5013 [Suspect]
     Route: 048

REACTIONS (2)
  - Acute myeloid leukaemia [Fatal]
  - Pneumonia [Recovered/Resolved]
